FAERS Safety Report 4913084-9 (Version None)
Quarter: 2006Q1

REPORT INFORMATION
  Report Type: 
  Country: None (occurrence: None)
  Receive Date: 20060210
  Receipt Date: 20060127
  Transmission Date: 20060701
  Serious: Yes (Death, Hospitalization)
  Sender: FDA-Public Use
  Company Number: L05-USA-03935-10

PATIENT
  Age: 49 Year
  Sex: Male

DRUGS (7)
  1. CITALOPRAM [Suspect]
  2. NORVASC [Suspect]
     Dosage: 90 TABLET
  3. DEMOXEPAM [Concomitant]
  4. NORDIAZEPAM [Suspect]
  5. OXAZEPAM [Concomitant]
  6. TEMAZEPAM [Concomitant]
  7. ALPRAZOLAM [Concomitant]

REACTIONS (13)
  - ARTERIOSCLEROSIS CORONARY ARTERY [None]
  - BLOOD PH INCREASED [None]
  - BLOOD PRESSURE SYSTOLIC DECREASED [None]
  - CARDIAC ARREST [None]
  - COMPLETED SUICIDE [None]
  - HEART RATE DECREASED [None]
  - HYPERGLYCAEMIA [None]
  - METABOLIC ACIDOSIS [None]
  - MYOCARDIAL INFARCTION [None]
  - OVERDOSE [None]
  - RENAL FAILURE [None]
  - RESPIRATORY DISTRESS [None]
  - SINUS TACHYCARDIA [None]
